FAERS Safety Report 24920599 (Version 1)
Quarter: 2025Q1

REPORT INFORMATION
  Report Type: Report from Study
  Country: US (occurrence: US)
  Receive Date: 20250204
  Receipt Date: 20250204
  Transmission Date: 20250408
  Serious: No
  Sender: EXELIXIS
  Company Number: US-EXELIXIS-CABO-24074319

PATIENT
  Age: 73 Year
  Sex: Male

DRUGS (3)
  1. CABOMETYX [Suspect]
     Active Substance: CABOZANTINIB S-MALATE
     Indication: Renal cancer
     Dosage: 40 MG, QD
     Route: 048
     Dates: start: 20240301, end: 20240326
  2. CABOMETYX [Suspect]
     Active Substance: CABOZANTINIB S-MALATE
     Dosage: 40 MG, QD
     Route: 048
     Dates: end: 202404
  3. CABOMETYX [Suspect]
     Active Substance: CABOZANTINIB S-MALATE
     Dosage: 40 MG, QD
     Route: 048
     Dates: start: 202404

REACTIONS (16)
  - Adverse drug reaction [Unknown]
  - Bone pain [Unknown]
  - Alopecia [Unknown]
  - Fatigue [Unknown]
  - Rash [Recovering/Resolving]
  - Diarrhoea [Unknown]
  - Abdominal pain upper [Recovering/Resolving]
  - Decreased appetite [Unknown]
  - Eating disorder [Unknown]
  - Weight increased [Unknown]
  - Bradykinesia [Unknown]
  - Peripheral swelling [Unknown]
  - Dyspnoea [Unknown]
  - Arthralgia [Recovering/Resolving]
  - Product prescribing issue [Unknown]
  - Product dose omission issue [Unknown]

NARRATIVE: CASE EVENT DATE: 20240301
